FAERS Safety Report 24768479 (Version 1)
Quarter: 2024Q4

REPORT INFORMATION
  Report Type: Spontaneous
  Country: FR (occurrence: FR)
  Receive Date: 20241223
  Receipt Date: 20241223
  Transmission Date: 20250114
  Serious: Yes (Other)
  Sender: CELLTRION
  Company Number: None

PATIENT

DRUGS (2)
  1. YUFLYMA [Suspect]
     Active Substance: ADALIMUMAB-AATY
     Indication: Spondyloarthropathy
     Dosage: 1 DF EVERY 15 DAYS
     Route: 058
     Dates: start: 202305, end: 202402
  2. YUFLYMA [Suspect]
     Active Substance: ADALIMUMAB-AATY
     Dosage: 1 DF EVERY 15 DAYS
     Route: 058
     Dates: start: 202404, end: 202405

REACTIONS (2)
  - Erectile dysfunction [Recovered/Resolved]
  - Intentional product use issue [Unknown]

NARRATIVE: CASE EVENT DATE: 20230501
